FAERS Safety Report 20704313 (Version 2)
Quarter: 2022Q2

REPORT INFORMATION
  Report Type: Report from Study
  Country: PR (occurrence: PR)
  Receive Date: 20220413
  Receipt Date: 20220424
  Transmission Date: 20220721
  Serious: Yes (Hospitalization)
  Sender: FDA-Public Use
  Company Number: PR-ABBVIE-22K-131-4355628-00

PATIENT
  Age: 14 Year
  Sex: Male
  Weight: 52.210 kg

DRUGS (8)
  1. HUMIRA [Suspect]
     Active Substance: ADALIMUMAB
     Indication: Colitis ulcerative
     Route: 058
     Dates: start: 20220211, end: 20220325
  2. HUMIRA [Suspect]
     Active Substance: ADALIMUMAB
     Indication: Colitis ulcerative
     Dosage: 40MG/0.4ML
     Route: 058
     Dates: start: 2022
  3. TOZINAMERAN [Concomitant]
     Active Substance: TOZINAMERAN
     Indication: COVID-19 immunisation
     Dosage: 1ST DOSE
     Route: 030
     Dates: start: 20210519, end: 20210519
  4. TOZINAMERAN [Concomitant]
     Active Substance: TOZINAMERAN
     Dosage: 2ND DOSE
     Route: 030
     Dates: start: 20210609, end: 20210609
  5. TOZINAMERAN [Concomitant]
     Active Substance: TOZINAMERAN
     Dosage: 3RD DOSE
     Route: 030
     Dates: start: 20220122, end: 20220122
  6. PREDNISONE [Concomitant]
     Active Substance: PREDNISONE
     Indication: Inflammation
     Dates: start: 20220128
  7. FOLIC ACID [Concomitant]
     Active Substance: FOLIC ACID
     Indication: Immunodeficiency
     Route: 048
     Dates: start: 20220201
  8. FOLIC ACID [Concomitant]
     Active Substance: FOLIC ACID
     Indication: Adverse drug reaction

REACTIONS (2)
  - Haemorrhage [Recovering/Resolving]
  - Drug ineffective [Not Recovered/Not Resolved]

NARRATIVE: CASE EVENT DATE: 20220406
